FAERS Safety Report 20066571 (Version 18)
Quarter: 2024Q1

REPORT INFORMATION
  Report Type: Spontaneous
  Country: CA (occurrence: CA)
  Receive Date: 20211115
  Receipt Date: 20240313
  Transmission Date: 20240409
  Serious: Yes (Other)
  Sender: FDA-Public Use
  Company Number: CA-CELLTRION INC.-2021CA010829

PATIENT

DRUGS (24)
  1. INFLECTRA [Suspect]
     Active Substance: INFLIXIMAB-DYYB
     Indication: Crohn^s disease
     Dosage: 5 MG/KG, INDUCTION DOSES AT WEEK 0, 2, AND 6, THEN EVERY 8 WEEKS
     Route: 042
     Dates: start: 20210615
  2. INFLECTRA [Suspect]
     Active Substance: INFLIXIMAB-DYYB
     Dosage: 5 MG/KG, INDUCTION DOSES AT WEEK 0, 2, AND 6, THEN EVERY 8 WEEKS
     Route: 042
     Dates: start: 20210702
  3. INFLECTRA [Suspect]
     Active Substance: INFLIXIMAB-DYYB
     Dosage: 5 MG/KG, INDUCTION DOSES AT WEEK 0, 2, AND 6, THEN EVERY 8 WEEKS
     Route: 042
     Dates: start: 20210730
  4. INFLECTRA [Suspect]
     Active Substance: INFLIXIMAB-DYYB
     Dosage: 5 MG/KG, INDUCTION DOSES AT WEEK 0, 2, AND 6, THEN EVERY 8 WEEKS
     Route: 042
     Dates: start: 20210924
  5. INFLECTRA [Suspect]
     Active Substance: INFLIXIMAB-DYYB
     Dosage: 5 MG/KG, INDUCTION DOSES AT WEEK 0, 2, AND 6, THEN EVERY 8 WEEKS
     Route: 042
     Dates: start: 20211129
  6. INFLECTRA [Suspect]
     Active Substance: INFLIXIMAB-DYYB
     Dosage: 5 MG/KG, INDUCTION DOSES AT WEEK 0, 2, AND 6, THEN EVERY 8 WEEKS
     Route: 042
     Dates: start: 20211129
  7. INFLECTRA [Suspect]
     Active Substance: INFLIXIMAB-DYYB
     Dosage: 5 MG/KG, INDUCTION DOSES AT WEEK 0, 2, AND 6, THEN EVERY 8 WEEKS
     Route: 042
     Dates: start: 20220121
  8. INFLECTRA [Suspect]
     Active Substance: INFLIXIMAB-DYYB
     Dosage: 5 MG/KG, INDUCTION DOSES AT WEEK 0, 2, AND 6, THEN EVERY 8
     Route: 042
     Dates: start: 20220318
  9. INFLECTRA [Suspect]
     Active Substance: INFLIXIMAB-DYYB
     Dosage: 5 MG/KG, INDUCTION DOSES AT WEEK 0, 2, AND 6, THEN EVERY 8
     Route: 042
     Dates: start: 20220513
  10. INFLECTRA [Suspect]
     Active Substance: INFLIXIMAB-DYYB
     Dosage: 5 MG/KG, INDUCTION DOSES AT WEEK 0, 2, AND 6, THEN EVERY 8 WEEKS
     Route: 042
     Dates: start: 20220708
  11. INFLECTRA [Suspect]
     Active Substance: INFLIXIMAB-DYYB
     Dosage: 5 MG/KG, INDUCTION DOSES AT WEEK 0, 2, AND 6, THEN EVERY 8 WEEKS
     Route: 042
     Dates: start: 20220708
  12. INFLECTRA [Suspect]
     Active Substance: INFLIXIMAB-DYYB
     Dosage: 5 MG/KG (500 MG), INDUCTION DOSES AT WEEK 0, 2, AND 6, THEN EVERY 8 WEEKS
     Route: 042
     Dates: start: 20220923
  13. INFLECTRA [Suspect]
     Active Substance: INFLIXIMAB-DYYB
     Dosage: 5 MG/KG (500 MG), INDUCTION DOSES AT WEEK 0, 2, AND 6, THEN EVERY 8 WEEKS
     Route: 042
     Dates: start: 20221118
  14. INFLECTRA [Suspect]
     Active Substance: INFLIXIMAB-DYYB
     Dosage: 5 MG/KG, INDUCTION DOSES AT WEEK 0, 2, AND 6, THEN EVERY 8 WEEKS
     Route: 042
     Dates: start: 20230113
  15. INFLECTRA [Suspect]
     Active Substance: INFLIXIMAB-DYYB
     Dosage: 5 MG/KG, EVERY 8 WEEKS
     Route: 042
     Dates: start: 20230310
  16. INFLECTRA [Suspect]
     Active Substance: INFLIXIMAB-DYYB
     Dosage: 5 MG/KG (455 MG), EVERY 8 WEEKS
     Route: 042
     Dates: start: 20230505
  17. INFLECTRA [Suspect]
     Active Substance: INFLIXIMAB-DYYB
     Dosage: 5 MG/KG (435 MG), EVERY 8 WEEKS
     Route: 042
     Dates: start: 20230630
  18. INFLECTRA [Suspect]
     Active Substance: INFLIXIMAB-DYYB
     Dosage: 5 MG/KG (430 MG), EVERY 8 WEEKS (AFTER 11 WEEKS)
     Route: 042
     Dates: start: 20230915
  19. INFLECTRA [Suspect]
     Active Substance: INFLIXIMAB-DYYB
     Dosage: 5 MG/KG, INDUCTION DOSES AT WEEK 0, 2, AND 6, THEN EVERY 8 WEEKS
     Route: 042
     Dates: start: 20240105
  20. INFLECTRA [Suspect]
     Active Substance: INFLIXIMAB-DYYB
     Dosage: 5 MG/KG, INDUCTION DOSES AT WEEK 0, 2, AND 6, THEN EVERY 8 WEEKS
     Route: 042
     Dates: start: 20240105
  21. INFLECTRA [Suspect]
     Active Substance: INFLIXIMAB-DYYB
     Dosage: 415 MG EVERY 8 WEEKS
     Dates: start: 20240301
  22. CALCIUM [Concomitant]
     Active Substance: CALCIUM
     Dosage: 1 DF, DOSAGE NOT AVAILABLE
     Route: 065
  23. MESALAMINE [Concomitant]
     Active Substance: MESALAMINE
     Dosage: 1 DF, DOSAGE NOT AVAILABLE
     Route: 065
     Dates: start: 20200108
  24. PANTOPRAZOLE SODIUM [Concomitant]
     Active Substance: PANTOPRAZOLE SODIUM
     Dosage: 1 DF, DOSAGE NOT AVAILABLE
     Route: 065

REACTIONS (26)
  - Uveitis [Recovered/Resolved]
  - Fistula [Recovered/Resolved]
  - Condition aggravated [Recovering/Resolving]
  - Rhinoplasty [Recovering/Resolving]
  - Fistula [Recovered/Resolved]
  - Malaise [Not Recovered/Not Resolved]
  - Vomiting [Not Recovered/Not Resolved]
  - Poor venous access [Unknown]
  - Nasal congestion [Recovered/Resolved]
  - Nocturia [Unknown]
  - Sleep disorder due to a general medical condition [Not Recovered/Not Resolved]
  - Anal fistula [Recovered/Resolved]
  - Anal fissure [Recovered/Resolved]
  - Heart rate decreased [Unknown]
  - Blood pressure increased [Unknown]
  - Hypertension [Unknown]
  - Abscess [Recovered/Resolved]
  - Arthralgia [Recovered/Resolved]
  - Oedema peripheral [Not Recovered/Not Resolved]
  - Headache [Unknown]
  - Nausea [Not Recovered/Not Resolved]
  - Oropharyngeal pain [Recovered/Resolved]
  - Constipation [Not Recovered/Not Resolved]
  - Fatigue [Not Recovered/Not Resolved]
  - Dyspnoea exertional [Not Recovered/Not Resolved]
  - Inappropriate schedule of product administration [Unknown]

NARRATIVE: CASE EVENT DATE: 20210101
